FAERS Safety Report 21519553 (Version 2)
Quarter: 2022Q4

REPORT INFORMATION
  Report Type: Report from Study
  Country: US (occurrence: US)
  Receive Date: 20221028
  Receipt Date: 20221128
  Transmission Date: 20230113
  Serious: No
  Sender: FDA-Public Use
  Company Number: US-NOVARTISTESTPH-NVSC2022US241127

PATIENT
  Sex: Female

DRUGS (1)
  1. COSENTYX [Suspect]
     Active Substance: SECUKINUMAB
     Indication: Psoriasis
     Dosage: 300 MG (300MG Q WEEKLY X 5 WEEKS THEN 300MG Q 4 WEEKS)
     Route: 058
     Dates: start: 202209

REACTIONS (2)
  - Feeling hot [Recovering/Resolving]
  - Feeling abnormal [Recovered/Resolved]
